FAERS Safety Report 10880512 (Version 2)
Quarter: 2015Q2

REPORT INFORMATION
  Report Type: Not Available
  Country: FR (occurrence: FR)
  Receive Date: 20150303
  Receipt Date: 20150505
  Transmission Date: 20150821
  Serious: Yes (Hospitalization)
  Sender: FDA-Public Use
  Company Number: FR-BEH-2015049111

PATIENT
  Age: 49 Year
  Sex: Female
  Weight: 70 kg

DRUGS (2)
  1. HIZENTRA [Suspect]
     Active Substance: HUMAN IMMUNOGLOBULIN G
     Dosage: START DATE ??-AUG-2013
     Route: 058
     Dates: end: 20141207
  2. HIZENTRA [Suspect]
     Active Substance: HUMAN IMMUNOGLOBULIN G
     Indication: HUMORAL IMMUNE DEFECT

REACTIONS (10)
  - Oropharyngeal discomfort [Unknown]
  - Malaise [Unknown]
  - Skin lesion [Unknown]
  - Rash [Unknown]
  - Oedema [Unknown]
  - Urticaria [Recovered/Resolved]
  - Rash [Recovered/Resolved]
  - Injection site reaction [Unknown]
  - Bronchial disorder [Unknown]
  - Angioedema [Recovered/Resolved]

NARRATIVE: CASE EVENT DATE: 201411
